FAERS Safety Report 21941014 (Version 1)
Quarter: 2023Q1

REPORT INFORMATION
  Report Type: Spontaneous
  Country: IT (occurrence: IT)
  Receive Date: 20230202
  Receipt Date: 20230202
  Transmission Date: 20230418
  Serious: No
  Sender: FDA-Public Use
  Company Number: None

PATIENT
  Age: 30 Year
  Sex: Male

DRUGS (1)
  1. CABOMETYX [Suspect]
     Active Substance: CABOZANTINIB S-MALATE
     Indication: Renal neoplasm
     Dosage: 60 MG, QD
     Route: 048
     Dates: start: 20220225, end: 20220517

REACTIONS (3)
  - Odynophagia [Unknown]
  - Blister [Unknown]
  - Stomatitis [Unknown]

NARRATIVE: CASE EVENT DATE: 20220412
